FAERS Safety Report 8270223-2 (Version None)
Quarter: 2012Q2

REPORT INFORMATION
  Report Type: 
  Country: None (occurrence: None)
  Receive Date: 20120410
  Receipt Date: 20120402
  Transmission Date: 20120825
  Serious: Yes (Other)
  Sender: FDA-Public Use
  Company Number: BR-SANOFI-AVENTIS-2012SA023062

PATIENT
  Age: 83 Year
  Sex: Female
  Weight: 78 kg

DRUGS (2)
  1. DONEPEZIL HCL [Concomitant]
  2. LANTUS [Suspect]
     Dosage: ABOUT 10 YEARS AGO
     Route: 065

REACTIONS (4)
  - DEMENTIA ALZHEIMER'S TYPE [None]
  - ABDOMINAL PAIN [None]
  - ABDOMINAL RIGIDITY [None]
  - INFARCTION [None]
